FAERS Safety Report 26202949 (Version 1)
Quarter: 2025Q4

REPORT INFORMATION
  Report Type: Spontaneous
  Country: US (occurrence: US)
  Receive Date: 20251226
  Receipt Date: 20251226
  Transmission Date: 20260118
  Serious: Yes (Death, Other)
  Sender: SANDOZ
  Company Number: US-SANDOZ-SDZ2025US096904

PATIENT
  Sex: Male

DRUGS (85)
  1. CLARITHROMYCIN [Suspect]
     Active Substance: CLARITHROMYCIN
     Indication: Product used for unknown indication
     Dosage: UNK
  2. CEFEPIME [Suspect]
     Active Substance: CEFEPIME HYDROCHLORIDE
     Indication: Mycobacterium avium complex infection
     Dosage: 100 MG (START DATE: 17-JUL-2024)
     Dates: start: 20240717, end: 20251212
  3. RIFAMPIN [Suspect]
     Active Substance: RIFAMPIN
     Indication: Product used for unknown indication
     Dosage: UNK
  4. ALBUTEROL [Concomitant]
     Active Substance: ALBUTEROL
     Indication: Product used for unknown indication
     Dosage: 2.5 MG, QD
     Dates: start: 20251212, end: 20251214
  5. AMIKACIN [Concomitant]
     Active Substance: AMIKACIN
     Indication: Product used for unknown indication
     Dosage: 500 MG,(START DATE:10-DEC-2025/STOP DATE:18-OCT-2025)
  6. AMIKACIN [Concomitant]
     Active Substance: AMIKACIN
     Dosage: 500 MG
     Dates: start: 20251127, end: 20251208
  7. NORVASC [Concomitant]
     Active Substance: AMLODIPINE BESYLATE
     Indication: Product used for unknown indication
     Dosage: 10 MG
     Dates: start: 20251209, end: 20251213
  8. NORVASC [Concomitant]
     Active Substance: AMLODIPINE BESYLATE
     Dosage: 10 MG
     Dates: start: 20251209, end: 20251209
  9. NORVASC [Concomitant]
     Active Substance: AMLODIPINE BESYLATE
     Dosage: 10 MG
     Dates: start: 20251208, end: 20251209
  10. ZITHROMAX [Concomitant]
     Active Substance: AZITHROMYCIN DIHYDRATE
     Indication: Product used for unknown indication
     Dosage: 500 MG, QD
     Dates: start: 20251126, end: 20251205
  11. WELLBUTRIN XL [Concomitant]
     Active Substance: BUPROPION HYDROCHLORIDE
     Indication: Product used for unknown indication
     Dosage: 150 MG, QD (DO NOT CRUSH/CHEW/BREAK - SWALLOW WHOLE)
     Dates: start: 20251126, end: 20251213
  12. OMNICEF [Concomitant]
     Active Substance: CEFDINIR
     Indication: Product used for unknown indication
     Dosage: 300 MG, Q12H
     Dates: start: 20251202, end: 20251208
  13. OMNICEF [Concomitant]
     Active Substance: CEFDINIR
     Indication: Product used for unknown indication
     Dosage: 300 MG, Q12H
     Dates: start: 20251208, end: 20251209
  14. MAXIPIME [Concomitant]
     Active Substance: CEFEPIME HYDROCHLORIDE
     Indication: Haematological infection
     Dosage: 1 G, Q12H
     Dates: start: 20251212, end: 20251213
  15. MAXIPIME [Concomitant]
     Active Substance: CEFEPIME HYDROCHLORIDE
     Dosage: 1 G, Q12H
     Dates: start: 20251211, end: 20251212
  16. MAXIPIME [Concomitant]
     Active Substance: CEFEPIME HYDROCHLORIDE
     Dosage: 2 G, Q8H
     Dates: start: 20251209, end: 20251211
  17. BIAXIN [Concomitant]
     Active Substance: CLARITHROMYCIN
     Indication: Mycobacterium avium complex infection
     Dosage: 500 MG, QD
     Dates: start: 20251213, end: 20251218
  18. BIAXIN [Concomitant]
     Active Substance: CLARITHROMYCIN
     Dosage: 500 MG, Q12H
     Dates: start: 20251208, end: 20251213
  19. BIAXIN [Concomitant]
     Active Substance: CLARITHROMYCIN
     Indication: Mycobacterium avium complex infection
     Dosage: 50 MG, Q12H
     Dates: start: 20251206, end: 20251208
  20. FLEXERIL [Concomitant]
     Active Substance: CYCLOBENZAPRINE HYDROCHLORIDE
     Indication: Product used for unknown indication
     Dosage: 5 MG, TID
     Dates: start: 20251129, end: 20251213
  21. CUBICIN [Concomitant]
     Active Substance: DAPTOMYCIN
     Indication: Haematological infection
     Dosage: 10 MG/KG, Q24H
     Dates: start: 20251210, end: 20251213
  22. VOLTAREN [Concomitant]
     Active Substance: DICLOFENAC SODIUM
     Indication: Product used for unknown indication
     Dosage: 2 G (4 TIMES A DAY)
     Route: 061
     Dates: start: 20251207, end: 20251218
  23. MYAMBUTOL [Concomitant]
     Active Substance: ETHAMBUTOL HYDROCHLORIDE
     Indication: Product used for unknown indication
     Dosage: 1000 MG
     Dates: start: 20251126, end: 20251218
  24. PEPCID [Concomitant]
     Active Substance: FAMOTIDINE
     Indication: Product used for unknown indication
     Dosage: 20 MG, QD
     Dates: start: 20251204, end: 20251208
  25. PEPCID [Concomitant]
     Active Substance: FAMOTIDINE
     Dosage: 20 MG, BID
     Dates: start: 20251126, end: 20251204
  26. PEPCID [Concomitant]
     Active Substance: FAMOTIDINE
     Indication: Product used for unknown indication
     Dosage: 20 MG, QD
     Dates: start: 20251208, end: 20251214
  27. INCRUSE ELLIPTA [Concomitant]
     Active Substance: UMECLIDINIUM BROMIDE
     Indication: Product used for unknown indication
     Dosage: 1 PFU, QD
     Dates: start: 20251127, end: 20251213
  28. BREO ELLIPTA [Concomitant]
     Active Substance: FLUTICASONE FUROATE\VILANTEROL TRIFENATATE
     Indication: Product used for unknown indication
     Dosage: 1 PFU, QD
     Dates: start: 20251127, end: 20251213
  29. LASIX [Concomitant]
     Active Substance: FUROSEMIDE
     Indication: Product used for unknown indication
     Dosage: 40 MG, QD
     Dates: start: 20251209, end: 20251209
  30. HEPARIN [Concomitant]
     Active Substance: HEPARIN SODIUM
     Indication: Product used for unknown indication
     Dosage: 2 ML
     Dates: start: 20251126, end: 20251218
  31. DILAUDID [Concomitant]
     Active Substance: HYDROMORPHONE HYDROCHLORIDE
     Indication: Pain
     Dosage: 0.25 MG, QD
     Dates: start: 20251213, end: 20251214
  32. DILAUDID [Concomitant]
     Active Substance: HYDROMORPHONE HYDROCHLORIDE
     Dosage: 0.1 MG, Q4H
     Dates: start: 20251213, end: 20251214
  33. METHOTREXATE [Concomitant]
     Active Substance: METHOTREXATE
     Indication: Product used for unknown indication
     Dosage: 5 MG/M2, QD
     Dates: start: 20251213, end: 20251213
  34. FLAGYL [Concomitant]
     Active Substance: METRONIDAZOLE\METRONIDAZOLE HYDROCHLORIDE
     Indication: Staphylococcal infection
     Dosage: 500 MG, Q8H
     Dates: start: 20251210, end: 20251213
  35. MYCAMINE [Concomitant]
     Active Substance: MICAFUNGIN SODIUM
     Indication: Prophylaxis
     Dosage: 100 MG, QD
     Dates: start: 20251206, end: 20251208
  36. MYCAMINE [Concomitant]
     Active Substance: MICAFUNGIN SODIUM
     Dosage: 150 MG, Q24H
     Dates: start: 20251209, end: 20251215
  37. VERSED [Concomitant]
     Active Substance: MIDAZOLAM HYDROCHLORIDE
     Indication: Product used for unknown indication
     Dosage: UNK
  38. NICODERM CQ [Concomitant]
     Active Substance: NICOTINE
     Indication: Product used for unknown indication
     Dosage: 1 UNK, QD
     Dates: start: 20251127, end: 20251218
  39. NOREPINEPHRINE BITARTRATE [Concomitant]
     Active Substance: NOREPINEPHRINE BITARTRATE
     Indication: Product used for unknown indication
     Dosage: UNK (CREATED BY CABINET OVERRIDE  HIGH ALERT MEDICATION IF PATIENT { 16 YEARS OF AGE;  PLEASE REORDER 2 HOURS PRIOR TO NEEDING NEW DOSE.  CENTRAL LINE PREFERRED )
     Dates: start: 20251213, end: 20251214
  40. MYCOSTATIN [Concomitant]
     Active Substance: NYSTATIN
     Indication: Product used for unknown indication
     Dosage: UNK UNK, BID
     Route: 064
     Dates: start: 20251126, end: 20251218
  41. MYCOSTATIN [Concomitant]
     Active Substance: NYSTATIN
     Indication: Product used for unknown indication
     Dosage: 500000 U (4 TIMES A DAY)
     Dates: start: 20251210, end: 20251217
  42. ZYPREXA [Concomitant]
     Active Substance: OLANZAPINE
     Indication: Product used for unknown indication
     Dosage: 5 MG
     Dates: start: 20251203, end: 20251208
  43. ZYPREXA [Concomitant]
     Active Substance: OLANZAPINE
     Dosage: 5 MG
     Dates: start: 20251208, end: 20251217
  44. ZOFRAN [Concomitant]
     Active Substance: ONDANSETRON HYDROCHLORIDE
     Indication: Product used for unknown indication
     Dosage: 24 MG, Q24H
     Dates: start: 20251127, end: 20251128
  45. ROXICODONE [Concomitant]
     Active Substance: OXYCODONE HYDROCHLORIDE
     Indication: Product used for unknown indication
     Dosage: 5 MG, QD (IMMEDIATE RELEASE TABLET)
     Dates: start: 20251213, end: 20251213
  46. ROXICODONE [Concomitant]
     Active Substance: OXYCODONE HYDROCHLORIDE
     Dosage: 5 MG, QD
     Dates: start: 20251207, end: 20251207
  47. PROTONIX [Concomitant]
     Active Substance: PANTOPRAZOLE SODIUM
     Indication: Product used for unknown indication
     Dosage: 40 MG
     Dates: start: 20251127, end: 20251208
  48. PROTONIX [Concomitant]
     Active Substance: PANTOPRAZOLE SODIUM
     Indication: Product used for unknown indication
     Dosage: 40 MG, BID
     Dates: start: 20251218, end: 20251218
  49. PROTONIX [Concomitant]
     Active Substance: PANTOPRAZOLE SODIUM
     Dosage: 40 MG, BID
     Dates: start: 20251208, end: 20251208
  50. SODIUM BICARBONATE [Concomitant]
     Active Substance: SODIUM BICARBONATE
     Indication: Product used for unknown indication
     Dosage: 1300 MG, BID
     Dates: start: 20251213
  51. SODIUM BICARBONATE [Concomitant]
     Active Substance: SODIUM BICARBONATE
     Dosage: 100 MG/ML, CONT
     Dates: start: 20251213, end: 20251214
  52. ALDACTONE [Concomitant]
     Active Substance: SPIRONOLACTONE
     Indication: Product used for unknown indication
     Dosage: 25 MG, QD
     Dates: start: 20251202, end: 20251208
  53. PROGRAF [Concomitant]
     Active Substance: TACROLIMUS
     Indication: Product used for unknown indication
     Dosage: 2.5 MG
     Dates: start: 20251205, end: 20251208
  54. PROGRAF [Concomitant]
     Active Substance: TACROLIMUS
     Dosage: 1.5 MG, BID
     Dates: start: 20251204, end: 20251205
  55. PROGRAF [Concomitant]
     Active Substance: TACROLIMUS
     Dosage: 2 MG, QD
     Dates: start: 20251206, end: 20251208
  56. PROGRAF [Concomitant]
     Active Substance: TACROLIMUS
     Indication: Product used for unknown indication
     Dosage: 1 MG
     Dates: start: 20251212, end: 20251214
  57. PROGRAF [Concomitant]
     Active Substance: TACROLIMUS
     Dosage: 1.5 MG, QD
  58. PROGRAF [Concomitant]
     Active Substance: TACROLIMUS
     Dosage: 2 MG, QD
     Dates: start: 20251211, end: 20251212
  59. PROGRAF [Concomitant]
     Active Substance: TACROLIMUS
     Dosage: 2 MG, QD
     Dates: start: 20251209, end: 20251211
  60. PROGRAF [Concomitant]
     Active Substance: TACROLIMUS
     Dosage: 2.5 MG, QD
     Dates: start: 20251208, end: 20251211
  61. FLOMAX [Concomitant]
     Active Substance: TAMSULOSIN HYDROCHLORIDE
     Indication: Product used for unknown indication
     Dosage: 0.4 MG
     Dates: start: 20251126, end: 20251213
  62. KENALOG [Concomitant]
     Active Substance: TRIAMCINOLONE ACETONIDE
     Indication: Rash
     Dosage: UNK UNK, BID
     Route: 061
     Dates: start: 20251128, end: 20251217
  63. ACTIGALL [Concomitant]
     Active Substance: URSODIOL
     Indication: Product used for unknown indication
     Dosage: 300 MG, TID
     Dates: start: 20251126, end: 20251208
  64. ACTIGALL [Concomitant]
     Active Substance: URSODIOL
     Dosage: 300 MG, TID
     Dates: start: 20251208, end: 20251218
  65. VALTREX [Concomitant]
     Active Substance: VALACYCLOVIR HYDROCHLORIDE
     Indication: Prophylaxis
     Dosage: 500 MG, BID
     Dates: start: 20251208, end: 20251218
  66. VALTREX [Concomitant]
     Active Substance: VALACYCLOVIR HYDROCHLORIDE
     Indication: Product used for unknown indication
     Dosage: 500 MG, BID
     Dates: start: 20251202, end: 20251208
  67. VANCOCIN [Concomitant]
     Active Substance: VANCOMYCIN HYDROCHLORIDE
     Indication: Haematological infection
     Dosage: 1250 MG, QD
     Dates: start: 20251210, end: 20251210
  68. VANCOCIN [Concomitant]
     Active Substance: VANCOMYCIN HYDROCHLORIDE
     Dosage: 1000 MG, QD
     Dates: start: 20251213, end: 20251213
  69. VANCOCIN [Concomitant]
     Active Substance: VANCOMYCIN HYDROCHLORIDE
     Dosage: 2 ML, Q12H
     Dates: start: 20251210, end: 20251218
  70. PRECEDEX [Concomitant]
     Active Substance: DEXMEDETOMIDINE HYDROCHLORIDE
     Indication: Product used for unknown indication
     Dosage: UNK
     Dates: start: 20251213, end: 20251214
  71. DEXTROSE [Concomitant]
     Active Substance: DEXTROSE MONOHYDRATE
     Indication: Product used for unknown indication
     Dosage: 1000 ML
     Dates: start: 20251213, end: 20251213
  72. SODIUM CHLORIDE [Concomitant]
     Active Substance: SODIUM CHLORIDE
     Indication: Product used for unknown indication
     Dosage: 75 UNK, CONT
     Dates: start: 20251208, end: 20251209
  73. SODIUM CHLORIDE [Concomitant]
     Active Substance: SODIUM CHLORIDE
     Dosage: 75 UNK, CONT
     Dates: start: 20251206, end: 20251208
  74. SODIUM CHLORIDE [Concomitant]
     Active Substance: SODIUM CHLORIDE
     Dosage: 50 UNK, CONT
     Dates: start: 20251126, end: 20251128
  75. SODIUM CHLORIDE [Concomitant]
     Active Substance: SODIUM CHLORIDE
     Dosage: 20 UNK, CONT
     Dates: start: 20251126, end: 20251215
  76. ALBUTEROL [Concomitant]
     Active Substance: ALBUTEROL
     Indication: Wheezing
     Dosage: 2 PFU, Q4H
     Dates: start: 20251210, end: 20251218
  77. ALBUTEROL [Concomitant]
     Active Substance: ALBUTEROL
     Indication: Dyspnoea
     Dosage: 2 PFU, Q4H
     Dates: start: 20251209, end: 20251209
  78. ALBUTEROL [Concomitant]
     Active Substance: ALBUTEROL
     Dosage: 2 PFU EVERY 6 HOURS
     Dates: start: 20251129, end: 20251209
  79. MAALOX MAX [Concomitant]
     Active Substance: ALUMINUM HYDROXIDE\DIMETHICONE\MAGNESIUM HYDROXIDE
     Indication: Abdominal pain upper
     Dosage: 30 ML, Q4H
     Dates: start: 20251126, end: 20251214
  80. LIORESAL [Concomitant]
     Active Substance: BACLOFEN
     Indication: Hiccups
     Dosage: 5 MG, BID
     Dates: start: 20251209, end: 20251218
  81. TUMS [Concomitant]
     Active Substance: CALCIUM CARBONATE
     Indication: Dyspepsia
     Dosage: 200 MG, TID
     Dates: start: 20241126, end: 20251214
  82. APRESOLINE HYDROCHLORIDE [Concomitant]
     Active Substance: HYDRALAZINE HYDROCHLORIDE
     Indication: Product used for unknown indication
     Dosage: 10 MG EVERY 6 HOURS
     Dates: start: 20251128, end: 20251214
  83. ATARAX [Concomitant]
     Active Substance: HYDROXYZINE HYDROCHLORIDE
     Indication: Pruritus
     Dosage: 12.5 MG EVERY 6 HOURS
     Dates: start: 20251209, end: 20251214
  84. ATARAX [Concomitant]
     Active Substance: HYDROXYZINE HYDROCHLORIDE
     Indication: Anxiety
     Dosage: 12.5 MG EVERY 6 HOURS
     Dates: start: 20251127, end: 20251209
  85. ULTRAM [Concomitant]
     Active Substance: TRAMADOL HYDROCHLORIDE
     Indication: Pain
     Dosage: 50 MG EVERY 6 HOURS
     Dates: start: 20251126, end: 20251214

REACTIONS (2)
  - Toxic encephalopathy [Fatal]
  - Gastrointestinal haemorrhage [Fatal]

NARRATIVE: CASE EVENT DATE: 20251213
